FAERS Safety Report 4750549-7 (Version None)
Quarter: 2005Q3

REPORT INFORMATION
  Report Type: 
  Country: None (occurrence: None)
  Receive Date: 20050823
  Receipt Date: 20050629
  Transmission Date: 20060218
  Serious: Yes (Hospitalization)
  Sender: FDA-Public Use
  Company Number: PHFR2005GB02375

PATIENT
  Age: 59 Year
  Sex: Female

DRUGS (2)
  1. DIOVAN [Suspect]
     Dosage: 160 MG/DAY
  2. DIOVAN [Suspect]
     Dosage: 80MG/DAY

REACTIONS (2)
  - HYPERTENSION [None]
  - MITRAL VALVE STENOSIS [None]
